FAERS Safety Report 21308588 (Version 3)
Quarter: 2025Q3

REPORT INFORMATION
  Report Type: Report from Study
  Country: EU (occurrence: EU)
  Receive Date: 20220908
  Receipt Date: 20250715
  Transmission Date: 20251020
  Serious: Yes (Hospitalization, Other)
  Sender: TAKEDA
  Company Number: EU-TAKEDA-2022TUS062523

PATIENT
  Age: 66 Year
  Sex: Male

DRUGS (16)
  1. TEDUGLUTIDE [Suspect]
     Active Substance: TEDUGLUTIDE
     Indication: Short-bowel syndrome
     Dosage: 3.7 MILLIGRAM, QD
     Dates: start: 20210211, end: 20210519
  2. TEDUGLUTIDE [Suspect]
     Active Substance: TEDUGLUTIDE
     Dosage: 3.12 MILLIGRAM, QD
     Dates: start: 20210520
  3. TEDUGLUTIDE [Suspect]
     Active Substance: TEDUGLUTIDE
     Dosage: 2.96 MILLIGRAM, QD
     Dates: start: 20210506, end: 20210923
  4. TEDUGLUTIDE [Suspect]
     Active Substance: TEDUGLUTIDE
     Dosage: 2.34 MILLIGRAM, QD
     Dates: start: 20210923
  5. AMITRIPTYLINE HYDROCHLORIDE [Concomitant]
     Active Substance: AMITRIPTYLINE HYDROCHLORIDE
     Indication: Pain
     Dosage: 5 GTT DROPS, QD
     Dates: start: 20220114
  6. Esoxx one [Concomitant]
     Indication: Gastrooesophageal reflux disease
     Dosage: 1 DOSAGE FORM, BID
     Dates: start: 20210923
  7. TRAZODONE HYDROCHLORIDE [Concomitant]
     Active Substance: TRAZODONE HYDROCHLORIDE
     Indication: Depression
     Dosage: 50 MILLIGRAM, QD
     Dates: start: 20210722
  8. DELORAZEPAM [Concomitant]
     Active Substance: DELORAZEPAM
     Indication: Sleep disorder
     Dosage: 0.5 MILLIGRAM, QD
     Dates: start: 20210720
  9. Rabeprazolo [Concomitant]
     Indication: Gastrointestinal disorder
     Dosage: UNK UNK, QD
     Dates: start: 201601
  10. CARDIOASPIRINA [Concomitant]
     Active Substance: ASPIRIN
     Indication: Thrombosis
     Dosage: 100 MILLIGRAM, QD
     Dates: start: 201601
  11. FEBUXOSTAT [Concomitant]
     Active Substance: FEBUXOSTAT
     Indication: Blood uric acid
     Dosage: 80 MILLIGRAM, QD
     Dates: start: 201801
  12. AMLODIPINE [Concomitant]
     Active Substance: AMLODIPINE BESYLATE
     Indication: Hypertension
     Dosage: 5 MILLIGRAM, QD
     Dates: start: 201601
  13. PANCRELIPASE [Concomitant]
     Active Substance: PANCRELIPASE
     Indication: Pancreatic failure
     Dosage: UNK UNK, TID
     Dates: start: 201601
  14. TACHIPIRINA [Concomitant]
     Active Substance: ACETAMINOPHEN
     Indication: Pain
  15. FONDAPARINUX [Concomitant]
     Active Substance: FONDAPARINUX
     Indication: Central venous catheterisation
     Dosage: 2.5 MILLIGRAM, QD
     Dates: start: 20210612
  16. SODIUM BICARBONATE [Concomitant]
     Active Substance: SODIUM BICARBONATE
     Indication: Hyperchlorhydria

REACTIONS (1)
  - Vascular device infection [Recovered/Resolved]

NARRATIVE: CASE EVENT DATE: 20210612
